FAERS Safety Report 14993177 (Version 1)
Quarter: 2018Q2

REPORT INFORMATION
  Report Type: Spontaneous
  Country: DE (occurrence: DE)
  Receive Date: 20180610
  Receipt Date: 20180610
  Transmission Date: 20180711
  Serious: Yes (Other)
  Sender: FDA-Public Use
  Company Number: PHHY2018DE009731

PATIENT
  Sex: Male

DRUGS (1)
  1. EXJADE [Suspect]
     Active Substance: DEFERASIROX
     Indication: THALASSAEMIA
     Dosage: 90 MG, (14 MG/KG BODY WEIGHT/DAY)
     Route: 065
     Dates: start: 2017

REACTIONS (8)
  - Hypoglycaemia [Unknown]
  - Fanconi syndrome acquired [Not Recovered/Not Resolved]
  - Renal tubular injury [Not Recovered/Not Resolved]
  - Carnitine deficiency [Unknown]
  - Gait disturbance [Not Recovered/Not Resolved]
  - Metabolic disorder [Unknown]
  - Renal tubular necrosis [Unknown]
  - Proteinuria [Unknown]
